FAERS Safety Report 16968953 (Version 1)
Quarter: 2019Q4

REPORT INFORMATION
  Report Type: Report from Study
  Country: US (occurrence: US)
  Receive Date: 20191029
  Receipt Date: 20191029
  Transmission Date: 20200122
  Serious: No
  Sender: FDA-Public Use
  Company Number: US-SAGE-2019SAGE000057

PATIENT

DRUGS (1)
  1. BREXANOLONE. [Suspect]
     Active Substance: BREXANOLONE
     Indication: PERINATAL DEPRESSION
     Route: 065

REACTIONS (1)
  - Menstruation irregular [Unknown]
